FAERS Safety Report 7355025-3 (Version None)
Quarter: 2011Q1

REPORT INFORMATION
  Report Type: 
  Country: None (occurrence: None)
  Receive Date: 20110316
  Receipt Date: 20110307
  Transmission Date: 20110831
  Serious: Yes (Hospitalization, Other)
  Sender: FDA-Public Use
  Company Number: US-NOVOPROD-324529

PATIENT
  Age: 73 Year
  Sex: Female
  Weight: 72.562 kg

DRUGS (2)
  1. NOVOLIN N [Suspect]
     Indication: TYPE 2 DIABETES MELLITUS
     Dosage: UNKNOWN
     Route: 058
     Dates: start: 20100101
  2. OMEPRAZOLE [Concomitant]
     Indication: GASTROOESOPHAGEAL REFLUX DISEASE
     Dosage: UNKNOWN

REACTIONS (8)
  - LOCALISED INFECTION [None]
  - FALL [None]
  - PARAESTHESIA ORAL [None]
  - ARTHRALGIA [None]
  - PAIN IN EXTREMITY [None]
  - BALANCE DISORDER [None]
  - OEDEMA PERIPHERAL [None]
  - DIZZINESS [None]
